FAERS Safety Report 15405504 (Version 1)
Quarter: 2018Q3

REPORT INFORMATION
  Report Type: Report from Study
  Country: TR (occurrence: TM)
  Receive Date: 20180920
  Receipt Date: 20180920
  Transmission Date: 20181010
  Serious: Yes (Hospitalization, Other)
  Sender: FDA-Public Use
  Company Number: TR-ACCORD-071729

PATIENT
  Age: 62 Year
  Sex: Female

DRUGS (4)
  1. REPAGLINIDE. [Concomitant]
     Active Substance: REPAGLINIDE
  2. IRBESARTAN. [Concomitant]
     Active Substance: IRBESARTAN
  3. METHOTREXATE. [Suspect]
     Active Substance: METHOTREXATE
     Indication: PRODUCT USED FOR UNKNOWN INDICATION
  4. FOLATE SODIUM/FOLIC ACID [Concomitant]

REACTIONS (2)
  - Mucosal inflammation [Recovered/Resolved]
  - Pancytopenia [Recovered/Resolved]
